FAERS Safety Report 19550011 (Version 5)
Quarter: 2022Q3

REPORT INFORMATION
  Report Type: Report from Study
  Country: US (occurrence: US)
  Receive Date: 20210715
  Receipt Date: 20220920
  Transmission Date: 20221027
  Serious: Yes (Other)
  Sender: FDA-Public Use
  Company Number: US-INSMED, INC.-2021-08895-US

PATIENT
  Sex: Male

DRUGS (2)
  1. ARIKAYCE [Suspect]
     Active Substance: AMIKACIN
     Indication: Mycobacterial infection
     Dosage: 590 MILLIGRAM, QD
     Route: 055
     Dates: start: 2021
  2. ARIKAYCE [Suspect]
     Active Substance: AMIKACIN
     Dosage: 590 MILLIGRAM

REACTIONS (12)
  - Oxygen saturation decreased [Recovered/Resolved]
  - Lung disorder [Recovering/Resolving]
  - Sputum discoloured [Recovered/Resolved]
  - Chest discomfort [Recovered/Resolved]
  - Productive cough [Recovered/Resolved]
  - Aphonia [Recovering/Resolving]
  - Cough [Recovered/Resolved]
  - Cough [Recovering/Resolving]
  - Unevaluable event [Not Recovered/Not Resolved]
  - Adverse drug reaction [Unknown]
  - Dyspnoea [Recovered/Resolved]
  - Haemoptysis [Recovering/Resolving]

NARRATIVE: CASE EVENT DATE: 20210101
